FAERS Safety Report 6469883-8 (Version None)
Quarter: 2009Q4

REPORT INFORMATION
  Report Type: 
  Country: None (occurrence: None)
  Receive Date: 20091203
  Receipt Date: 20071112
  Transmission Date: 20100525
  Serious: Yes (Life-Threatening, Hospitalization, Other)
  Sender: FDA-Public Use
  Company Number: DE-ELI_LILLY_AND_COMPANY-DE200711003823

PATIENT
  Age: 50 Year
  Sex: Male

DRUGS (13)
  1. OLANZAPINE [Suspect]
     Dosage: 15 MG, DAILY (1/D)
     Route: 048
     Dates: start: 20070201, end: 20070601
  2. OLANZAPINE [Suspect]
     Dosage: 20 MG, DAILY (1/D)
     Route: 048
     Dates: start: 20070602
  3. OLANZAPINE [Suspect]
     Dosage: 17.5 MG, DAILY (1/D)
     Route: 048
     Dates: start: 20070901
  4. ZYBAN [Concomitant]
     Dosage: 1540 MG, DAILY (1/D)
     Route: 048
     Dates: start: 20070601, end: 20070611
  5. ZYBAN [Concomitant]
     Dosage: 300 MG, EACH MORNING
     Route: 048
     Dates: start: 20070612
  6. ZYBAN [Concomitant]
     Dosage: 150 MG, DAILY (1/D)
     Route: 048
     Dates: start: 20070621
  7. ZYBAN [Concomitant]
     Dosage: 300 MG, EACH MORNING
     Dates: start: 20070101
  8. DIAZEPAM [Concomitant]
     Dosage: 17.5 MG, DAILY (1/D)
     Route: 048
     Dates: start: 20070601, end: 20070612
  9. DIAZEPAM [Concomitant]
     Dosage: 10 MG, DAILY (1/D)
     Route: 048
     Dates: start: 20070613, end: 20070614
  10. DIAZEPAM [Concomitant]
     Dosage: 2.5 MG, 2/D
     Route: 048
     Dates: start: 20070621, end: 20070731
  11. LITHIUM CARBONATE [Concomitant]
     Dosage: 800 MG, DAILY (1/D)
     Dates: start: 20070101
  12. LITHIUM CARBONATE [Concomitant]
     Dosage: 600 MG, UNK
  13. OMACOR [Concomitant]
     Dosage: 1 D/F, EACH MORNING
     Dates: start: 20070601

REACTIONS (12)
  - CEREBELLAR SYNDROME [None]
  - DEEP VEIN THROMBOSIS [None]
  - DYSARTHRIA [None]
  - ECZEMA [None]
  - GAIT DISTURBANCE [None]
  - MOOD ALTERED [None]
  - PNEUMONIA [None]
  - PULMONARY EMBOLISM [None]
  - SEDATION [None]
  - SUICIDAL IDEATION [None]
  - SUICIDE ATTEMPT [None]
  - TREMOR [None]
